FAERS Safety Report 8820495 (Version 1)
Quarter: 2012Q4

REPORT INFORMATION
  Report Type: 
  Country: US (occurrence: US)
  Receive Date: 20121002
  Receipt Date: 20121002
  Transmission Date: 20130627
  Serious: No
  Sender: FDA-Public Use
  Company Number: US-COVIDIEN/TYCO HEALTHCARE/MALLINCKRODT-T201202800

PATIENT
  Age: 65 Year
  Sex: Male

DRUGS (7)
  1. EXALGO EXTENDED RELEASE [Suspect]
     Indication: PAIN
     Dosage: 12 mg, UNK
     Dates: start: 20120704, end: 20120705
  2. NEXIUM                             /01479302/ [Concomitant]
     Indication: ULCER
  3. ADVAIR [Concomitant]
     Indication: BRONCHITIS CHRONIC
  4. DIURETIC                           /00022001/ [Concomitant]
     Indication: BLOOD PRESSURE
  5. LISINOPRIL [Concomitant]
     Indication: BLOOD PRESSURE
  6. CRESTOR [Concomitant]
     Indication: BLOOD CHOLESTEROL INCREASED
  7. TRAZODONE [Concomitant]
     Indication: SLEEP DISORDER
     Dosage: 50 mg at night

REACTIONS (8)
  - Tachyphrenia [Recovered/Resolved]
  - Fear [Recovered/Resolved]
  - Anxiety [Recovered/Resolved]
  - Depression [Recovered/Resolved]
  - Pollakiuria [Recovered/Resolved]
  - Diarrhoea [Recovered/Resolved]
  - Crying [Recovered/Resolved]
  - Insomnia [Recovered/Resolved]
